FAERS Safety Report 10573061 (Version 1)
Quarter: 2014Q4

REPORT INFORMATION
  Report Type: Spontaneous
  Country: PT (occurrence: PT)
  Receive Date: 20141110
  Receipt Date: 20141110
  Transmission Date: 20150529
  Serious: Yes (Life-Threatening, Other)
  Sender: FDA-Public Use
  Company Number: PT-GLAXOSMITHKLINE-PT2014016341

PATIENT
  Age: 75 Year
  Sex: Male
  Weight: 80 kg

DRUGS (4)
  1. COMBODART [Suspect]
     Active Substance: DUTASTERIDE\TAMSULOSIN
     Indication: BENIGN PROSTATIC HYPERPLASIA
     Route: 048
     Dates: start: 20141025, end: 20141026
  2. FELODIPINE. [Concomitant]
     Active Substance: FELODIPINE
     Indication: HYPERTENSION
     Dosage: CHRONIC DRUG
     Route: 048
  3. PRITORPLUS [Concomitant]
     Active Substance: HYDROCHLOROTHIAZIDE\TELMISARTAN
     Indication: HYPERTENSION
     Dosage: CHRONIC DRUG
     Route: 048
  4. VARFINE [Concomitant]
     Indication: ANTICOAGULANT THERAPY
     Dosage: CHRONIC DRUG
     Route: 048

REACTIONS (4)
  - Confusional state [Recovered/Resolved]
  - Fall [Recovered/Resolved]
  - Loss of consciousness [Recovered/Resolved]
  - Dizziness [Recovered/Resolved]

NARRATIVE: CASE EVENT DATE: 20141026
